FAERS Safety Report 9075031 (Version 1)
Quarter: 2013Q1

REPORT INFORMATION
  Report Type: Report from Study
  Country: US (occurrence: US)
  Receive Date: 20130131
  Receipt Date: 20130131
  Transmission Date: 20140127
  Serious: No
  Sender: FDA-Public Use
  Company Number: US-ABBOTT-12P-163-1005889-00

PATIENT
  Age: 37 Year
  Sex: Male

DRUGS (3)
  1. HUMIRA [Suspect]
     Indication: PSORIATIC ARTHROPATHY
     Dates: start: 20120829
  2. METHOTREXATE [Concomitant]
     Indication: PSORIATIC ARTHROPATHY
  3. PREDNISONE [Concomitant]
     Indication: PSORIATIC ARTHROPATHY
     Dosage: 5 MG DAILY

REACTIONS (9)
  - Arthritis [Unknown]
  - Pain [Recovering/Resolving]
  - Nasopharyngitis [Unknown]
  - Nasal congestion [Unknown]
  - Nasal congestion [Not Recovered/Not Resolved]
  - Cough [Unknown]
  - Body temperature [Unknown]
  - Injection site pain [Unknown]
  - Rash pruritic [Unknown]
